FAERS Safety Report 8156199-7 (Version None)
Quarter: 2012Q1

REPORT INFORMATION
  Report Type: 
  Country: None (occurrence: None)
  Receive Date: 20120103
  Receipt Date: 20111026
  Transmission Date: 20120608
  Serious: No
  Sender: FDA-Public Use
  Company Number: AE-2011-002718

PATIENT
  Age: 43 Year
  Sex: Female
  Weight: 90.2658 kg

DRUGS (6)
  1. PEGASYS [Concomitant]
  2. RIBAVIRIN [Concomitant]
  3. ALBUTEROL [Concomitant]
  4. CITALOPRAM HYDROBROMIDE [Concomitant]
  5. INCIVEK [Suspect]
     Dosage: 2250 MG (750 MG, 1 IN 8 HR)
     Dates: start: 20111025
  6. INDOMETHACIN [Concomitant]

REACTIONS (1)
  - HEADACHE [None]
